FAERS Safety Report 5918645-6 (Version None)
Quarter: 2008Q4

REPORT INFORMATION
  Report Type: 
  Country: None (occurrence: None)
  Receive Date: 20081015
  Receipt Date: 20081001
  Transmission Date: 20090506
  Serious: Yes (Death)
  Sender: FDA-Public Use
  Company Number: JP-BAYER-200828026GPV

PATIENT

DRUGS (1)
  1. FLUDARABINE PHOSPHATE [Suspect]
     Indication: STEM CELL TRANSPLANT
     Route: 065

REACTIONS (5)
  - DEATH [None]
  - ENCEPHALITIS [None]
  - FUNGAL INFECTION [None]
  - INFECTION [None]
  - LEUKOENCEPHALOMYELITIS [None]
